FAERS Safety Report 8826867 (Version 2)
Quarter: 2012Q4

REPORT INFORMATION
  Report Type: 
  Country: US (occurrence: US)
  Receive Date: 20121005
  Receipt Date: 20121116
  Transmission Date: 20130627
  Serious: Yes (Hospitalization, Other)
  Sender: FDA-Public Use
  Company Number: US-ALEXION-A201201877

PATIENT
  Sex: Male
  Weight: 69 kg

DRUGS (8)
  1. SOLIRIS 300MG [Suspect]
     Indication: HAEMOLYTIC URAEMIC SYNDROME
     Dosage: UNK
     Route: 042
  2. COUMADIN [Concomitant]
     Dosage: UNK
  3. CIPRO [Concomitant]
     Dosage: UNK
  4. DOXYCYCLINE [Concomitant]
     Dosage: UNK
  5. CYMBALTA [Concomitant]
     Dosage: UNK
  6. VALTREX [Concomitant]
     Dosage: UNK
  7. ZOMETA [Concomitant]
     Dosage: UNK
  8. VELCADE [Concomitant]
     Dosage: UNK

REACTIONS (2)
  - Colitis [Recovered/Resolved]
  - Device leakage [Unknown]
